FAERS Safety Report 16078491 (Version 2)
Quarter: 2019Q2

REPORT INFORMATION
  Report Type: Report from Study
  Country: JP (occurrence: JP)
  Receive Date: 20190315
  Receipt Date: 20190430
  Transmission Date: 20190711
  Serious: Yes (Hospitalization)
  Sender: FDA-Public Use
  Company Number: JP-TEVA-725027ISR

PATIENT
  Age: 40 Year
  Sex: Male
  Weight: 77 kg

DRUGS (5)
  1. EDIROL [Concomitant]
     Active Substance: ELDECALCITOL
  2. LANSOPRAZOLE. [Concomitant]
     Active Substance: LANSOPRAZOLE
     Dates: start: 20161108
  3. PREDNISOLONE. [Concomitant]
     Active Substance: PREDNISOLONE
     Route: 065
     Dates: start: 20161108
  4. LIORESAL [Concomitant]
     Active Substance: BACLOFEN
     Dates: start: 20160816, end: 20170510
  5. GLATIRAMER ACETATE. [Suspect]
     Active Substance: GLATIRAMER ACETATE
     Indication: PRIMARY PROGRESSIVE MULTIPLE SCLEROSIS
     Dosage: 20 MILLIGRAM/MILLILITERS DAILY;
     Route: 058
     Dates: start: 20160224, end: 20170511

REACTIONS (4)
  - Gait disturbance [Recovering/Resolving]
  - Condition aggravated [Recovering/Resolving]
  - Off label use [Unknown]
  - Injection site pruritus [Recovered/Resolved]

NARRATIVE: CASE EVENT DATE: 20160224
